FAERS Safety Report 15167388 (Version 1)
Quarter: 2018Q3

REPORT INFORMATION
  Report Type: Spontaneous
  Country: US (occurrence: US)
  Receive Date: 20180719
  Receipt Date: 20180719
  Transmission Date: 20181010
  Serious: Yes (Death, Other)
  Sender: FDA-Public Use
  Company Number: US-TEVA-2018-US-926528

PATIENT
  Age: 83 Year
  Sex: Female
  Weight: 54 kg

DRUGS (26)
  1. DEXMEDETOMIDINE. [Suspect]
     Active Substance: DEXMEDETOMIDINE
     Indication: ANAESTHESIA
     Dosage: 1 MICROG/KG LOADING DOSE OF DEXMEDETOMIDINE OVER 10 MINUTES FOLLOWED BY 0.5 MICROG/ KG/H MAINTENA...
     Route: 041
  2. EPHEDRINE. [Concomitant]
     Active Substance: EPHEDRINE
     Dosage: 15MG EPHEDRINE IN 5?MG DOSES AS NECESSARY TO MAINTAIN HR AND BP; AT THE FOURTH SEDATION APPOINTMENT
     Route: 065
  3. ALFENTANIL. [Suspect]
     Active Substance: ALFENTANIL
     Indication: ANAESTHESIA
     Dosage: INCREMENTAL DOSES STARTING FROM 250MICROG; TOTAL DOSE 625MICROG
     Route: 065
  4. LEVOTHROID [Concomitant]
     Active Substance: LEVOTHYROXINE SODIUM
     Indication: HYPOTHYROIDISM
     Dosage: 50 MICROG
     Route: 065
  5. PROPOFOL. [Suspect]
     Active Substance: PROPOFOL
     Indication: ANAESTHESIA
     Dosage: AT THE THIRD SEDATION APPOINTMENT
     Route: 050
  6. PROPOFOL. [Suspect]
     Active Substance: PROPOFOL
     Indication: ANAESTHESIA
     Dosage: AT THE FOURTH SEDATION APPOINTMENT
     Route: 050
  7. MEPIVACAINE [Suspect]
     Active Substance: MEPIVACAINE\MEPIVACAINE HYDROCHLORIDE
     Indication: ANAESTHESIA
     Dosage: 3.6 ML
     Route: 065
  8. EPHEDRINE. [Concomitant]
     Active Substance: EPHEDRINE
     Dosage: 5 MG; AT THE SECOND SEDATION APPOINTMENT
     Route: 065
  9. MIDAZOLAM [Suspect]
     Active Substance: MIDAZOLAM HYDROCHLORIDE
     Indication: ANAESTHESIA
     Dosage: 1 MG; AT THE FIRST SEDATION APPOINTMENT
     Route: 065
  10. SODIUM CHLORIDE. [Concomitant]
     Active Substance: SODIUM CHLORIDE
     Dosage: LESS THAN 300 ML OF 0.9%
     Route: 065
  11. LIDOCAINE HYDROCHLORIDE AND EPINEPHRINE BITARTRATE [Concomitant]
     Active Substance: EPINEPHRINE BITARTRATE\LIDOCAINE HYDROCHLORIDE
     Dosage: 3.6 ML; 1 : 100,000
     Route: 065
  12. COUMADIN [Concomitant]
     Active Substance: WARFARIN SODIUM
     Indication: ATRIAL FIBRILLATION
     Dosage: 1MG
     Route: 065
  13. MEPIVACAINE [Suspect]
     Active Substance: MEPIVACAINE\MEPIVACAINE HYDROCHLORIDE
     Indication: LOCAL ANAESTHESIA
     Dosage: 3.6 ML
     Route: 065
  14. DEXMEDETOMIDINE. [Suspect]
     Active Substance: DEXMEDETOMIDINE
     Indication: ANAESTHESIA
     Dosage: 1 MICROG/KG LOADING DOSE OVER 10 MINUTES FOLLOWED BY 0.5 MICROG/KG/H MAINTENANCE DOSE TOTAL 94 MI...
     Route: 041
  15. DEXMEDETOMIDINE. [Suspect]
     Active Substance: DEXMEDETOMIDINE
     Indication: ANAESTHESIA
     Dosage: DOSE OF DEXMEDETOMIDINE 1 MICROG/KG OVER 10 MINUTES FOLLOWED BY 0.5 MICROG/KG/H MAINTENANCE DOSE ...
     Route: 041
  16. SUFENTANIL [Concomitant]
     Active Substance: SUFENTANIL
     Dosage: 2.5 MICROG/KG
     Route: 065
  17. EPHEDRINE. [Concomitant]
     Active Substance: EPHEDRINE
     Dosage: AT THE THIRD SEDATION APPOINTMENT
     Route: 065
  18. PROPOFOL. [Suspect]
     Active Substance: PROPOFOL
     Indication: ANAESTHESIA
     Dosage: 5?10MG BOLUSES; AT THE SECOND SEDATION APPOINTMENT,
     Route: 050
  19. MIDAZOLAM [Suspect]
     Active Substance: MIDAZOLAM HYDROCHLORIDE
     Indication: ANAESTHESIA
     Dosage: 0.5 MG; AT THE SECOND SEDATION APPOINTMENT
     Route: 065
  20. ARTICAINE/EPINEPHRINE [Suspect]
     Active Substance: ARTICAINE\EPINEPHRINE
     Indication: ANAESTHESIA
     Dosage: 0.45ML OF 4% ARTICAINE/EPINEPHRINE 1 : 100,000
     Route: 065
  21. FENTANYL. [Concomitant]
     Active Substance: FENTANYL
     Dosage: AT THE THIRD SEDATION APPOINTMENT
     Route: 065
  22. FENTANYL. [Concomitant]
     Active Substance: FENTANYL
     Dosage: 25 MICROG; AT THE FOURTH SEDATION APPOINTMENT
     Route: 065
  23. KEPPRA [Concomitant]
     Active Substance: LEVETIRACETAM
     Indication: SEIZURE
     Dosage: 1000MG
     Route: 065
  24. PROPOFOL. [Suspect]
     Active Substance: PROPOFOL
     Indication: ANAESTHESIA
     Dosage: 35MICROG/KG/MIN OVER 2.5 HOURS; AT THE FIRST SEDATION APPOINTMENT
     Route: 050
  25. PACERONE [Concomitant]
     Active Substance: AMIODARONE HYDROCHLORIDE
     Indication: ARRHYTHMIA
     Dosage: 20MG
     Route: 065
  26. LIPITOR [Concomitant]
     Active Substance: ATORVASTATIN CALCIUM
     Indication: HYPERCHOLESTEROLAEMIA
     Dosage: 10MG
     Route: 065

REACTIONS (5)
  - Hypotension [Recovered/Resolved]
  - Airway complication of anaesthesia [Recovered/Resolved]
  - Bradycardia [Recovered/Resolved]
  - Respiratory depression [Recovered/Resolved]
  - Hypertension [Recovered/Resolved]
